FAERS Safety Report 14841077 (Version 4)
Quarter: 2018Q2

REPORT INFORMATION
  Report Type: Spontaneous
  Country: US (occurrence: US)
  Receive Date: 20180503
  Receipt Date: 20180607
  Transmission Date: 20180711
  Serious: No
  Sender: FDA-Public Use
  Company Number: US-SUNOVION-2018SUN001594

PATIENT

DRUGS (5)
  1. GEODON [Concomitant]
     Active Substance: ZIPRASIDONE HYDROCHLORIDE\ZIPRASIDONE MESYLATE
  2. LATUDA [Suspect]
     Active Substance: LURASIDONE HYDROCHLORIDE
     Dosage: UNK
     Route: 048
  3. LATUDA [Suspect]
     Active Substance: LURASIDONE HYDROCHLORIDE
     Dosage: UNK (HALF OF DOSE), REGIMEN #1UNK
     Route: 048
  4. XANAX [Concomitant]
     Active Substance: ALPRAZOLAM
  5. ABILIFY [Concomitant]
     Active Substance: ARIPIPRAZOLE

REACTIONS (9)
  - Stress [Not Recovered/Not Resolved]
  - Hypomania [Unknown]
  - Underdose [Unknown]
  - Anxiety [Not Recovered/Not Resolved]
  - Somnolence [Unknown]
  - Mania [Unknown]
  - Decreased appetite [Unknown]
  - Drug administration error [Unknown]
  - Insomnia [Not Recovered/Not Resolved]
